FAERS Safety Report 6827155-3 (Version None)
Quarter: 2010Q3

REPORT INFORMATION
  Report Type: 
  Country: None (occurrence: None)
  Receive Date: 20100709
  Receipt Date: 20100706
  Transmission Date: 20110219
  Serious: Yes (Hospitalization)
  Sender: FDA-Public Use
  Company Number: CH-BRISTOL-MYERS SQUIBB COMPANY-15182942

PATIENT
  Age: 32 Year
  Sex: Male

DRUGS (3)
  1. ABILIFY [Suspect]
     Indication: AUTISM
  2. RIVOTRIL [Suspect]
  3. LORAZEPAM [Suspect]

REACTIONS (2)
  - BRUGADA SYNDROME [None]
  - EPILEPSY [None]
